FAERS Safety Report 11741634 (Version 1)
Quarter: 2015Q4

REPORT INFORMATION
  Report Type: Spontaneous
  Country: US (occurrence: None)
  Receive Date: 20151113
  Receipt Date: 20151113
  Transmission Date: 20160304
  Serious: Yes (Other)
  Sender: FDA-Public Use
  Company Number: None

PATIENT
  Age: 59 Year
  Sex: Male

DRUGS (1)
  1. WARFARIN [Suspect]
     Active Substance: WARFARIN
     Dosage: TAKE ONE-HALF (1/2) TO TWO TABLETS DAILY, ADJUST DOSE PER INR VALUE AND INSTRUCTIONS
     Route: 048

REACTIONS (2)
  - International normalised ratio decreased [None]
  - Product quality issue [None]

NARRATIVE: CASE EVENT DATE: 20150921
